FAERS Safety Report 25183138 (Version 4)
Quarter: 2025Q2

REPORT INFORMATION
  Report Type: Spontaneous
  Country: MY (occurrence: MY)
  Receive Date: 20250410
  Receipt Date: 20250514
  Transmission Date: 20250717
  Serious: Yes (Life-Threatening, Hospitalization, Disabling, Other)
  Sender: MACLEODS
  Company Number: MY-MACLEODS PHARMA-MAC2025052511

PATIENT

DRUGS (3)
  1. QUETIAPINE [Suspect]
     Active Substance: QUETIAPINE
     Indication: Bipolar II disorder
     Dosage: EVERY NIGHT, FOR 3 YEARS (ON)
     Route: 048
  2. QUETIAPINE [Suspect]
     Active Substance: QUETIAPINE
     Dosage: EVERY NIGHT
     Route: 048
     Dates: start: 202101
  3. LAMOTRIGINE [Concomitant]
     Active Substance: LAMOTRIGINE
     Indication: Bipolar II disorder
     Dosage: EVERY NIGHT
     Route: 048

REACTIONS (2)
  - Familial periodic paralysis [Recovered/Resolved]
  - Exposure during pregnancy [Unknown]

NARRATIVE: CASE EVENT DATE: 20210101
